FAERS Safety Report 21290182 (Version 1)
Quarter: 2022Q3

REPORT INFORMATION
  Report Type: Spontaneous
  Country: US (occurrence: US)
  Receive Date: 20220902
  Receipt Date: 20220902
  Transmission Date: 20221026
  Serious: No
  Sender: FDA-Public Use
  Company Number: US-ORGANON-O2208USA002421

PATIENT
  Sex: Female
  Weight: 141.5 kg

DRUGS (3)
  1. NEXPLANON [Suspect]
     Active Substance: ETONOGESTREL
     Indication: Contraception
     Dosage: 1 IMPLANT OF 68 MG
     Route: 059
     Dates: start: 20191018, end: 20220829
  2. OMEPRAZOLE [Concomitant]
     Active Substance: OMEPRAZOLE
     Dosage: UNK
  3. NOVA [ETHINYLESTRADIOL;LEVONORGESTREL] [Concomitant]
     Dosage: UNK

REACTIONS (3)
  - Device breakage [Recovered/Resolved]
  - Encapsulation reaction [Unknown]
  - Implant site pain [Unknown]

NARRATIVE: CASE EVENT DATE: 20220101
